FAERS Safety Report 22146902 (Version 1)
Quarter: 2023Q1

REPORT INFORMATION
  Report Type: Spontaneous
  Country: US (occurrence: None)
  Receive Date: 20230327
  Receipt Date: 20230327
  Transmission Date: 20230418
  Serious: Yes (Death, Life-Threatening, Hospitalization)
  Sender: FDA-Public Use
  Company Number: None

PATIENT
  Age: 66 Year
  Sex: Female

DRUGS (1)
  1. FAM-TRASTUZUMAB DERUXTECAN-NXKI [Suspect]
     Active Substance: FAM-TRASTUZUMAB DERUXTECAN-NXKI
     Indication: Breast cancer metastatic
     Dates: start: 20220118, end: 20230131

REACTIONS (6)
  - Lung infiltration [None]
  - Acute kidney injury [None]
  - Agitation [None]
  - Confusional state [None]
  - Interstitial lung disease [None]
  - Oxygen saturation decreased [None]

NARRATIVE: CASE EVENT DATE: 20230317
